FAERS Safety Report 6970438-7 (Version None)
Quarter: 2010Q3

REPORT INFORMATION
  Report Type: 
  Country: None (occurrence: None)
  Receive Date: 20100903
  Receipt Date: 20100826
  Transmission Date: 20110219
  Serious: Yes (Other)
  Sender: FDA-Public Use
  Company Number: 016466

PATIENT
  Sex: Female
  Weight: 74 kg

DRUGS (5)
  1. NEUPRO [Suspect]
     Indication: RESTLESS LEGS SYNDROME
     Dosage: 3 MG QD TRANSDERMAL
     Route: 062
     Dates: start: 20100601
  2. EFEROX [Concomitant]
  3. LAFAMME [Concomitant]
  4. PANTOPRAZOLE SODIUM [Concomitant]
  5. NOVAMINSULFON [Concomitant]

REACTIONS (4)
  - CONCUSSION [None]
  - DRUG INEFFECTIVE [None]
  - RASH [None]
  - SPINAL COLUMN STENOSIS [None]
